FAERS Safety Report 4836649-1 (Version None)
Quarter: 2005Q4

REPORT INFORMATION
  Report Type: 
  Country: None (occurrence: None)
  Receive Date: 20051121
  Receipt Date: 20051109
  Transmission Date: 20060501
  Serious: Yes (Other)
  Sender: FDA-Public Use
  Company Number: 2005153681

PATIENT
  Age: 51 Year
  Sex: Male
  Weight: 95.2554 kg

DRUGS (9)
  1. NICOTROL [Suspect]
     Indication: SMOKING CESSATION THERAPY
     Dosage: AMOUNT VARIES, OFF AND ON, INHALATION
     Route: 055
     Dates: start: 20050101
  2. ETHANOL (ETHANOL) [Suspect]
     Dosage: A FEW DRINKS, ORAL
     Route: 048
  3. DRUG, UNSPECIFIED (DRUG, UNSPECIFIED) [Suspect]
     Indication: SEDATIVE THERAPY
     Dates: start: 20050101
  4. DULOXETINE HYDROCHLORIDE (DULOXETINE HYDROCHLORIDE) [Concomitant]
  5. CLOPIDOGREL BISULFATE [Concomitant]
  6. TRAZODONE HCL [Concomitant]
  7. HYDROCHLOROTHIAZIDE [Concomitant]
  8. LORAZEPAM [Concomitant]
  9. EZETIMIBE/SIMVASTATIN (EZETIMIBE, SIMVASTATIN) [Concomitant]

REACTIONS (4)
  - ALCOHOL USE [None]
  - ANXIETY [None]
  - DIZZINESS [None]
  - ROAD TRAFFIC ACCIDENT [None]
